FAERS Safety Report 6662034-6 (Version None)
Quarter: 2010Q1

REPORT INFORMATION
  Report Type: 
  Country: None (occurrence: None)
  Receive Date: 20100331
  Receipt Date: 20100126
  Transmission Date: 20100710
  Serious: No
  Sender: FDA-Public Use
  Company Number: US-BRISTOL-MYERS SQUIBB COMPANY-14939292

PATIENT
  Age: 61 Year
  Sex: Male
  Weight: 148 kg

DRUGS (5)
  1. ERBITUX [Suspect]
     Indication: HEAD AND NECK CANCER
     Dosage: 250MG/M2/W (490 MG) LOADING DOSE:400 MG/M2
     Route: 041
     Dates: start: 20090105
  2. LASIX [Concomitant]
  3. K-DUR [Concomitant]
  4. MAGNESIUM OXIDE [Concomitant]
  5. FOLIC ACID [Concomitant]

REACTIONS (2)
  - BLOOD MAGNESIUM DECREASED [None]
  - ECTROPION [None]
